FAERS Safety Report 11641465 (Version 8)
Quarter: 2016Q3

REPORT INFORMATION
  Report Type: Spontaneous
  Country: JP (occurrence: JP)
  Receive Date: 20151019
  Receipt Date: 20160719
  Transmission Date: 20161109
  Serious: Yes (Life-Threatening, Hospitalization)
  Sender: FDA-Public Use
  Company Number: JP-BAYER-2015-439740

PATIENT
  Age: 77 Year
  Sex: Male
  Weight: 70 kg

DRUGS (9)
  1. PLAVIX [Suspect]
     Active Substance: CLOPIDOGREL BISULFATE
     Dosage: DAILY DOSE 75 MG
     Route: 048
     Dates: start: 1996, end: 20150528
  2. CRESTOR [Concomitant]
     Active Substance: ROSUVASTATIN CALCIUM
     Indication: HYPERLIPIDAEMIA
     Dosage: DAILY DOSE 2.5 MG
     Route: 048
     Dates: end: 20150528
  3. ISOSORBIDE DINITRATE. [Concomitant]
     Active Substance: ISOSORBIDE DINITRATE
     Indication: MYOCARDIAL INFARCTION
     Dosage: DAILY DOSE 40 MG
     Route: 048
     Dates: start: 1996, end: 20150528
  4. NEXAVAR [Suspect]
     Active Substance: SORAFENIB
     Indication: HEPATOCELLULAR CARCINOMA
     Dosage: 100 MG, QD
     Dates: start: 20150608
  5. BAYASPIRIN [Suspect]
     Active Substance: ASPIRIN
     Dosage: 100 MG, QD
     Route: 048
     Dates: start: 1996, end: 20150528
  6. ADALAT CC [Concomitant]
     Active Substance: NIFEDIPINE
     Indication: HYPERTENSION
     Dosage: DAILY DOSE 40 MG
     Route: 048
     Dates: end: 20150528
  7. PLAVIX [Suspect]
     Active Substance: CLOPIDOGREL BISULFATE
     Dosage: DAILY DOSE 75 MG
     Route: 048
     Dates: start: 20150604
  8. NEXAVAR [Suspect]
     Active Substance: SORAFENIB
     Indication: HEPATOCELLULAR CARCINOMA
     Dosage: 400 MG, QD
     Route: 048
     Dates: start: 20150525, end: 20150528
  9. BAYASPIRIN [Suspect]
     Active Substance: ASPIRIN
     Dosage: 100 MG, QD
     Route: 048
     Dates: start: 20150604

REACTIONS (2)
  - Tumour rupture [Recovered/Resolved]
  - Metastases to peritoneum [Recovered/Resolved]

NARRATIVE: CASE EVENT DATE: 20150528
